FAERS Safety Report 10346508 (Version 1)
Quarter: 2014Q3

REPORT INFORMATION
  Report Type: Spontaneous
  Country: GB (occurrence: GB)
  Receive Date: 20140729
  Receipt Date: 20140729
  Transmission Date: 20150326
  Serious: Yes (Other)
  Sender: FDA-Public Use
  Company Number: PHHY2014GB090745

PATIENT
  Age: 22 Year
  Sex: Female

DRUGS (5)
  1. SUXAMETHONIUM [Suspect]
     Active Substance: SUCCINYLCHOLINE
  2. THIOPENTONE [Suspect]
     Active Substance: THIOPENTAL SODIUM
  3. SEVOFLURANE. [Suspect]
     Active Substance: SEVOFLURANE
  4. NITROUS OXIDE. [Suspect]
     Active Substance: NITROUS OXIDE
  5. METOPROLOL [Suspect]
     Active Substance: METOPROLOL
     Dosage: 250 MG, PER DAY

REACTIONS (2)
  - Foetal acidosis [Unknown]
  - Maternal exposure during pregnancy [Unknown]
